FAERS Safety Report 4466243-6 (Version None)
Quarter: 2004Q4

REPORT INFORMATION
  Report Type: 
  Country: None (occurrence: None)
  Receive Date: 20041005
  Receipt Date: 20040927
  Transmission Date: 20050328
  Serious: Yes (Hospitalization)
  Sender: FDA-Public Use
  Company Number: US-JNJFOC-20040906769

PATIENT
  Sex: Male

DRUGS (3)
  1. BLINDED; INFLIXIMAB, RECOMBINANT [Suspect]
     Route: 042
  2. BLINDED; INFLIXIMAB, RECOMBINANT [Suspect]
     Dosage: FINAL INFUSION
     Route: 042
  3. PLACEBO [Suspect]
     Dosage: FINAL INFUSION
     Route: 042

REACTIONS (1)
  - EPISTAXIS [None]
